FAERS Safety Report 8920877 (Version 1)
Quarter: 2012Q4

REPORT INFORMATION
  Report Type: 
  Country: US (occurrence: US)
  Receive Date: 20121121
  Receipt Date: 20121121
  Transmission Date: 20130627
  Serious: Yes (Death, Hospitalization)
  Sender: FDA-Public Use
  Company Number: US-GLAXOSMITHKLINE-A0909694A

PATIENT
  Sex: Female
  Weight: 85.2 kg

DRUGS (1)
  1. ROSIGLITAZONE [Suspect]
     Indication: TYPE 2 DIABETES MELLITUS
     Route: 048

REACTIONS (4)
  - Cerebrovascular accident [Fatal]
  - Cardiac failure congestive [Fatal]
  - Acute myocardial infarction [Unknown]
  - Angina unstable [Unknown]
